FAERS Safety Report 4802145-0 (Version None)
Quarter: 2005Q4

REPORT INFORMATION
  Report Type: 
  Country: None (occurrence: None)
  Receive Date: 20051012
  Receipt Date: 20050926
  Transmission Date: 20060501
  Serious: Yes (Death, Hospitalization)
  Sender: FDA-Public Use
  Company Number: 215750

PATIENT
  Age: 63 Year
  Sex: Female

DRUGS (10)
  1. RITUXAN [Suspect]
     Indication: NON-HODGKIN'S LYMPHOMA
     Dosage: UNK
     Route: 065
     Dates: start: 20010101, end: 20040101
  2. COUMADIN [Concomitant]
  3. AMITRIPTYLINE HCL [Concomitant]
  4. ADVAIR DISKUS (SALMETEROL XINAFOATE, FLUTICASONE PROPIONATE) [Concomitant]
  5. SPIRIVA [Concomitant]
  6. ALBUTEROL [Concomitant]
  7. LEVSIN (HYOSCYAMINE SULFATE) [Concomitant]
  8. BACLOFEN [Concomitant]
  9. COLACE (DOCUSATE SODIUM) [Concomitant]
  10. OXYGEN (OXYGEN) [Concomitant]

REACTIONS (12)
  - APHASIA [None]
  - BALANCE DISORDER [None]
  - COUGH [None]
  - DEMYELINATION [None]
  - DISORIENTATION [None]
  - GENERAL PHYSICAL HEALTH DETERIORATION [None]
  - HEMIPLEGIA [None]
  - ISCHAEMIA [None]
  - MUSCLE RIGIDITY [None]
  - MUSCLE SPASMS [None]
  - PNEUMONIA ASPIRATION [None]
  - PROGRESSIVE MULTIFOCAL LEUKOENCEPHALOPATHY [None]
